FAERS Safety Report 7274759-2 (Version None)
Quarter: 2011Q1

REPORT INFORMATION
  Report Type: 
  Country: None (occurrence: None)
  Receive Date: 20110128
  Receipt Date: 20110119
  Transmission Date: 20110831
  Serious: Yes (Death, Life-Threatening)
  Sender: FDA-Public Use
  Company Number: LEO-2011-00093

PATIENT
  Age: 63 Year
  Sex: Female

DRUGS (15)
  1. LOVENOX [Suspect]
     Indication: PRODUCT USED FOR UNKNOWN INDICATION
     Dosage: SUBCUTANEOUS
     Route: 058
     Dates: start: 20101101, end: 20101226
  2. NOCTAMIDE (LORMETAZEPAM) [Concomitant]
  3. AUGMENTIN '125' [Concomitant]
  4. LEXOMIL (BROMAZEPAM) [Concomitant]
  5. ZOFRAN [Concomitant]
  6. FRAXODI (NADROPARIN CALCIUM) (INJECTION) [Suspect]
     Indication: PRODUCT USED FOR UNKNOWN INDICATION
     Dosage: SUBCUTANEOUS
     Route: 058
     Dates: start: 20101101, end: 20101226
  7. OMEPRAZOLE [Concomitant]
  8. GLIVEC (IMATINIB MESILATE) (400 MILLIGRAM TABLETS) [Suspect]
     Indication: SMALL INTESTINE CARCINOMA
     Dosage: 1 DOSAGE FORMS, ORAL
     Route: 048
     Dates: start: 20100701, end: 20101227
  9. CREON [Concomitant]
  10. INNOHEP [Suspect]
     Indication: THROMBOSIS
     Dosage: (1 IN 1 D), SUBCUTANEOUS
     Route: 058
     Dates: start: 20101101, end: 20101226
  11. TUSSIPAX (CODEINE) (SYRUP) [Suspect]
     Indication: PRODUCT USED FOR UNKNOWN INDICATION
     Dosage: 3 DOSAGE FORMS (1 DOSAGE FORMS, 3 IN 1 D), ORAL
     Route: 048
     Dates: start: 20101101, end: 20101227
  12. PRIMPERAN ELIXIR [Concomitant]
  13. ACETAMINOPHEN [Concomitant]
  14. PREVISCAN (FLUINDIONE) [Concomitant]
  15. SPASFON (PHLOROGLUCINOL) [Concomitant]

REACTIONS (7)
  - THROMBOSIS [None]
  - PERITONEAL HAEMORRHAGE [None]
  - ASTHENIA [None]
  - HAEMORRHAGE [None]
  - THROMBOCYTOPENIA [None]
  - HYPOVOLAEMIC SHOCK [None]
  - GASTROINTESTINAL HAEMORRHAGE [None]
